FAERS Safety Report 15949851 (Version 1)
Quarter: 2019Q1

REPORT INFORMATION
  Report Type: Spontaneous
  Country: IT (occurrence: IT)
  Receive Date: 20190212
  Receipt Date: 20190212
  Transmission Date: 20190417
  Serious: Yes (Other)
  Sender: FDA-Public Use
  Company Number: IT-AUROBINDO-AUR-APL-2019-006598

PATIENT

DRUGS (13)
  1. ESOMEPRAZOLE SODIUM. [Concomitant]
     Active Substance: ESOMEPRAZOLE SODIUM
     Indication: PRODUCT USED FOR UNKNOWN INDICATION
     Dosage: 40 MILLIGRAM,UNK
     Route: 048
  2. VALSARTAN. [Concomitant]
     Active Substance: VALSARTAN
     Indication: HYPERTENSION
     Dosage: 80 MILLIGRAM, UNK
     Route: 048
  3. PAROXETINE FILM-COATED TABLET [Suspect]
     Active Substance: PAROXETINE
     Indication: DEPRESSION
     Dosage: 20 MILLIGRAM, DAILY
     Route: 048
  4. BISOPROLOL FUMARATE. [Concomitant]
     Active Substance: BISOPROLOL FUMARATE
     Indication: PRODUCT USED FOR UNKNOWN INDICATION
     Dosage: 5 MILLIGRAM,UNK
     Route: 048
  5. LEVOSULPIRIDE [Concomitant]
     Active Substance: LEVOSULPIRIDE
     Indication: PRODUCT USED FOR UNKNOWN INDICATION
     Dosage: UNK
     Route: 048
  6. TARDYFER [Concomitant]
     Active Substance: FERROUS SULFATE
     Indication: IRON DEFICIENCY
     Dosage: 80 MILLIGRAM,UNK
     Route: 048
  7. FOLIC ACID. [Concomitant]
     Active Substance: FOLIC ACID
     Indication: PRODUCT USED FOR UNKNOWN INDICATION
     Dosage: UNK
     Route: 048
  8. FUROSEMIDE. [Concomitant]
     Active Substance: FUROSEMIDE
     Indication: HYPERTENSION
     Dosage: 25 MILLIGRAM, UNK
     Route: 048
  9. QUETIAPINE. [Concomitant]
     Active Substance: QUETIAPINE
     Indication: PRODUCT USED FOR UNKNOWN INDICATION
     Dosage: 50 MILLIGRAM, UNK
     Route: 048
  10. TAVOR (LORAZEPAM) [Interacting]
     Active Substance: LORAZEPAM
     Indication: INSOMNIA
     Dosage: UNK
     Route: 048
     Dates: start: 20190117, end: 20190120
  11. NOVORAPID [Concomitant]
     Active Substance: INSULIN ASPART
     Indication: TYPE 2 DIABETES MELLITUS
     Dosage: 22 INTERNATIONAL UNIT, UNK, FLEXPEN 100 UNITS/ML SOLUTION FOR INJECTION IN PRE-FILLED PEN
     Route: 058
  12. CLOPIDOGREL [Concomitant]
     Active Substance: CLOPIDOGREL BISULFATE
     Indication: PRODUCT USED FOR UNKNOWN INDICATION
     Dosage: 75 MILLIGRAM,UNK
     Route: 048
  13. LANTUS [Concomitant]
     Active Substance: INSULIN GLARGINE
     Indication: TYPE 2 DIABETES MELLITUS
     Dosage: 8 INTERNATIONAL UNIT, UNK
     Route: 058

REACTIONS (5)
  - Sopor [Recovering/Resolving]
  - Insomnia [None]
  - Loss of consciousness [Recovering/Resolving]
  - Fall [Recovering/Resolving]
  - Drug interaction [Recovering/Resolving]

NARRATIVE: CASE EVENT DATE: 20190120
